FAERS Safety Report 11457295 (Version 1)
Quarter: 2015Q3

REPORT INFORMATION
  Report Type: Spontaneous
  Country: US (occurrence: None)
  Receive Date: 20150902
  Receipt Date: 20150902
  Transmission Date: 20151125
  Serious: Yes (Other)
  Sender: FDA-Public Use
  Company Number: 54973 AE # 1627

PATIENT
  Age: 77 Year
  Sex: Male

DRUGS (1)
  1. HYLAND^S LEG CRAMPS PM TABLETS [Suspect]
     Active Substance: HOMEOPATHICS
     Indication: MUSCLE SPASMS
     Dosage: SL X 1 DOSE
     Route: 060

REACTIONS (3)
  - Blood glucose increased [None]
  - Asthenia [None]
  - No therapeutic response [None]

NARRATIVE: CASE EVENT DATE: 20150814
